FAERS Safety Report 9351288 (Version 1)
Quarter: 2013Q2

REPORT INFORMATION
  Report Type: Spontaneous
  Country: FR (occurrence: FR)
  Receive Date: 20130617
  Receipt Date: 20130617
  Transmission Date: 20140414
  Serious: Yes (Other)
  Sender: FDA-Public Use
  Company Number: PHHY2013FR060682

PATIENT
  Age: 26 Year
  Sex: Male

DRUGS (4)
  1. METHADONE [Suspect]
     Indication: DRUG DEPENDENCE
     Dosage: 40 MG, DAILY
     Dates: start: 20120903
  2. METHADONE [Suspect]
     Dosage: 50 MG, DAILY
     Dates: start: 20120904
  3. METHADONE [Suspect]
     Dosage: 60 MG, DAILY
     Dates: start: 20120906
  4. METHADONE [Suspect]
     Dosage: 50 MG, DAILY

REACTIONS (5)
  - Priapism [Recovered/Resolved]
  - Testicular pain [Recovered/Resolved]
  - Pelvic pain [Recovered/Resolved]
  - Pain in extremity [Recovered/Resolved]
  - Neck pain [Recovered/Resolved]
